FAERS Safety Report 24160770 (Version 2)
Quarter: 2024Q3

REPORT INFORMATION
  Report Type: Other
  Country: CA (occurrence: CA)
  Receive Date: 20240801
  Receipt Date: 20240821
  Transmission Date: 20241017
  Serious: Yes (Other)
  Sender: APOTEX
  Company Number: CA-APOTEX-2024AP008927

PATIENT
  Age: 67 Year
  Sex: Female

DRUGS (1)
  1. ZOLEDRONIC ACID [Suspect]
     Active Substance: ZOLEDRONIC ACID
     Indication: Osteoporosis
     Dosage: UNK, EVERY 1 YEAR
     Route: 065

REACTIONS (5)
  - Ventricular extrasystoles [Recovered/Resolved]
  - Cardiac flutter [Recovered/Resolved]
  - Condition aggravated [Recovered/Resolved]
  - Anxiety [Recovered/Resolved]
  - Pallor [Recovered/Resolved]
